FAERS Safety Report 22098838 (Version 1)
Quarter: 2023Q1

REPORT INFORMATION
  Report Type: Spontaneous
  Country: US (occurrence: US)
  Receive Date: 20230315
  Receipt Date: 20230315
  Transmission Date: 20230418
  Serious: Yes (Other)
  Sender: FDA-Public Use
  Company Number: US-C B Fleet Co Inc-202303-US-000674

PATIENT
  Sex: Female

DRUGS (2)
  1. CHLORASEPTIC SORE THROAT MAX [Suspect]
     Active Substance: GLYCERIN\PHENOL
     Indication: Oropharyngeal pain
     Dosage: USED 2 SPRAYS ONE TIME
     Route: 048
  2. CHLORASEPTIC SORE THROAT MAX [Suspect]
     Active Substance: GLYCERIN\PHENOL
     Indication: Aphthous ulcer

REACTIONS (2)
  - Hypersensitivity [Recovered/Resolved]
  - Overdose [None]
